FAERS Safety Report 25876988 (Version 1)
Quarter: 2025Q4

REPORT INFORMATION
  Report Type: Report from Study
  Country: GB (occurrence: GB)
  Receive Date: 20251003
  Receipt Date: 20251003
  Transmission Date: 20260118
  Serious: Yes (Hospitalization, Other)
  Sender: TEVA
  Company Number: GB-TEVA-VS-3376185

PATIENT
  Age: 55 Year
  Sex: Male

DRUGS (1)
  1. AJOVY [Suspect]
     Active Substance: FREMANEZUMAB-VFRM
     Indication: Migraine
     Dosage: AJOVY 225MG/1.5ML PFP 3
     Route: 058
     Dates: end: 2025

REACTIONS (3)
  - Seizure [Unknown]
  - Cerebrovascular accident [Unknown]
  - Somnolence [Unknown]

NARRATIVE: CASE EVENT DATE: 20250501
